FAERS Safety Report 5361290-4 (Version None)
Quarter: 2007Q2

REPORT INFORMATION
  Report Type: 
  Country: None (occurrence: None)
  Receive Date: 20070614
  Receipt Date: 20070607
  Transmission Date: 20071010
  Serious: Yes (Other)
  Sender: FDA-Public Use
  Company Number: 2007-02758

PATIENT
  Age: 46 Year
  Sex: Female

DRUGS (4)
  1. ZONISAMIDE [Suspect]
     Indication: BRAIN OEDEMA
     Dosage: 200 MG, DAILY, ORAL
     Route: 048
     Dates: start: 19991201, end: 20000401
  2. ZONISAMIDE [Suspect]
     Indication: CONVULSION PROPHYLAXIS
     Dosage: 200 MG, DAILY, ORAL
     Route: 048
     Dates: start: 19991201, end: 20000401
  3. ZONISAMIDE [Suspect]
     Indication: PROPHYLAXIS
     Dosage: 200 MG, DAILY, ORAL
     Route: 048
     Dates: start: 19991201, end: 20000401
  4. CORTICOSTEROIDS [Concomitant]

REACTIONS (2)
  - DRUG RASH WITH EOSINOPHILIA AND SYSTEMIC SYMPTOMS [None]
  - SCLERODERMA [None]
